FAERS Safety Report 9477901 (Version 1)
Quarter: 2013Q3

REPORT INFORMATION
  Report Type: Other
  Country: GB (occurrence: GB)
  Receive Date: 20130827
  Receipt Date: 20130827
  Transmission Date: 20140515
  Serious: Yes (Other)
  Sender: FDA-Public Use
  Company Number: GB-TARO PHARMACEUTICALS U.S.A., INC-2013SUN04522

PATIENT
  Age: 70 Year
  Sex: Male
  Weight: 88 kg

DRUGS (3)
  1. WARFARIN [Suspect]
     Indication: ATRIAL FIBRILLATION
     Dosage: 10 MG, OD
     Route: 048
     Dates: start: 20130711, end: 20130715
  2. WARFARIN [Interacting]
     Indication: CEREBROVASCULAR ACCIDENT
  3. LANREOTIDE [Interacting]
     Indication: CARCINOID TUMOUR
     Dosage: 1DOSE/MONTH

REACTIONS (2)
  - Drug interaction [Recovered/Resolved]
  - International normalised ratio increased [Recovered/Resolved]
